FAERS Safety Report 9650856 (Version 2)
Quarter: 2013Q4

REPORT INFORMATION
  Report Type: Report from Study
  Country: JP (occurrence: JP)
  Receive Date: 20131029
  Receipt Date: 20131203
  Transmission Date: 20140711
  Serious: Yes (Other)
  Sender: FDA-Public Use
  Company Number: JP-JNJFOC-20131015257

PATIENT
  Age: 78 Year
  Sex: Male
  Weight: 75 kg

DRUGS (5)
  1. TRAMCET [Suspect]
     Indication: PAIN
     Route: 048
     Dates: start: 20120719, end: 20120725
  2. TRAMCET [Suspect]
     Indication: PAIN
     Route: 048
     Dates: start: 20120726, end: 20130620
  3. PRIMPERAN [Concomitant]
     Indication: PROPHYLAXIS
     Route: 048
     Dates: start: 20120719, end: 20120808
  4. LYRICA [Concomitant]
     Indication: PAIN
     Route: 048
     Dates: end: 20130620
  5. DEPAS [Concomitant]
     Indication: PAIN
     Route: 048

REACTIONS (1)
  - Cerebral infarction [Recovered/Resolved]
